FAERS Safety Report 23553881 (Version 2)
Quarter: 2024Q2

REPORT INFORMATION
  Report Type: Spontaneous
  Country: IN (occurrence: IN)
  Receive Date: 20240222
  Receipt Date: 20240618
  Transmission Date: 20240716
  Serious: Yes (Other)
  Sender: FDA-Public Use
  Company Number: IN-PFIZER INC-PV202200030653

PATIENT
  Age: 78 Year
  Sex: Female

DRUGS (2)
  1. PALBOCICLIB [Suspect]
     Active Substance: PALBOCICLIB
     Indication: Breast cancer
     Dosage: 125 MG, 3 WEEKS ON ONE WEEK OFF
     Route: 048
     Dates: start: 202203
  2. PALBOCICLIB [Suspect]
     Active Substance: PALBOCICLIB
     Dosage: 125 MG, CYCLIC (DAILY 3 WEEKS,1 WEEK OFF FOR 2 MONTHS)
     Route: 048
     Dates: start: 20220429

REACTIONS (13)
  - Pneumonia [Unknown]
  - Parkinson^s disease [Unknown]
  - Rash [Recovered/Resolved]
  - Blood sodium decreased [Unknown]
  - White blood cell count decreased [Unknown]
  - Pyrexia [Unknown]
  - Full blood count increased [Unknown]
  - Infection [Unknown]
  - Drug intolerance [Unknown]
  - Electrolyte imbalance [Unknown]
  - Asthenia [Unknown]
  - Cholelithiasis [Unknown]
  - Neoplasm progression [Unknown]

NARRATIVE: CASE EVENT DATE: 20220101
